FAERS Safety Report 8045036-7 (Version None)
Quarter: 2012Q1

REPORT INFORMATION
  Report Type: 
  Country: None (occurrence: None)
  Receive Date: 20120113
  Receipt Date: 20120110
  Transmission Date: 20120608
  Serious: Yes (Death)
  Sender: FDA-Public Use
  Company Number: PHEH2012US000986

PATIENT
  Sex: Female

DRUGS (2)
  1. RECLAST [Suspect]
     Dosage: 5 MG, UNK PER YEAR
     Route: 042
     Dates: start: 20110613
  2. RECLAST [Suspect]
     Dosage: 5 MG, UNK PER YEAR
     Route: 042
     Dates: start: 20091111

REACTIONS (1)
  - DEATH [None]
